FAERS Safety Report 9714234 (Version 2)
Quarter: 2013Q4

REPORT INFORMATION
  Report Type: Spontaneous
  Country: US (occurrence: US)
  Receive Date: 20131126
  Receipt Date: 20131126
  Transmission Date: 20140711
  Serious: No
  Sender: FDA-Public Use
  Company Number: US-GILEAD-2008-0019490

PATIENT
  Sex: Male
  Weight: 68.04 kg

DRUGS (8)
  1. LETAIRIS [Suspect]
     Indication: PULMONARY HYPERTENSION
     Route: 048
     Dates: start: 20080811
  2. REVATIO [Concomitant]
  3. TORSEMIDE [Concomitant]
  4. SPIRONOLACTONE [Concomitant]
  5. PERCOCET [Concomitant]
  6. AMBIEN [Concomitant]
  7. TUMS [Concomitant]
  8. SENOKOT-S [Concomitant]

REACTIONS (1)
  - Tinnitus [None]
